FAERS Safety Report 22071617 (Version 2)
Quarter: 2023Q1

REPORT INFORMATION
  Report Type: Spontaneous
  Country: US (occurrence: US)
  Receive Date: 20230307
  Receipt Date: 20230310
  Transmission Date: 20230417
  Serious: No
  Sender: FDA-Public Use
  Company Number: US-PFIZER INC-PV202300043408

PATIENT
  Age: 9 Year
  Sex: Male

DRUGS (3)
  1. EUCRISA [Suspect]
     Active Substance: CRISABOROLE
     Indication: Eczema
     Dosage: UNK (2X1 DAILY)
     Route: 061
  2. EUCRISA [Suspect]
     Active Substance: CRISABOROLE
     Indication: Eczema
  3. EUCRISA [Suspect]
     Active Substance: CRISABOROLE
     Indication: Pain

REACTIONS (2)
  - Hyperaesthesia [Unknown]
  - Off label use [Unknown]
